FAERS Safety Report 24614973 (Version 1)
Quarter: 2024Q4

REPORT INFORMATION
  Report Type: Spontaneous
  Country: US (occurrence: US)
  Receive Date: 20241113
  Receipt Date: 20241113
  Transmission Date: 20250114
  Serious: Yes (Other)
  Sender: ALCON
  Company Number: US-ALCON LABORATORIES-ALC2024US004959

PATIENT
  Age: 59 Year
  Sex: Male

DRUGS (2)
  1. OFLOXACIN [Suspect]
     Active Substance: OFLOXACIN
     Indication: Eye pain
     Dosage: UNK
     Route: 047
  2. PROPARACAINE HYDROCHLORIDE [Suspect]
     Active Substance: PROPARACAINE HYDROCHLORIDE
     Indication: Eye pain
     Dosage: UNK
     Route: 047

REACTIONS (3)
  - Corneal abrasion [Recovered/Resolved]
  - Keratitis [Recovered/Resolved]
  - Injury of conjunctiva [Unknown]
